FAERS Safety Report 14004521 (Version 4)
Quarter: 2018Q1

REPORT INFORMATION
  Report Type: Report from Study
  Country: CN (occurrence: CN)
  Receive Date: 20170922
  Receipt Date: 20180105
  Transmission Date: 20180508
  Serious: Yes (Death, Hospitalization)
  Sender: FDA-Public Use
  Company Number: CN-AMGEN-CHNCT2017142082

PATIENT
  Age: 69 Year
  Sex: Male
  Weight: 54.5 kg

DRUGS (21)
  1. CALCITRIOL. [Concomitant]
     Active Substance: CALCITRIOL
     Dosage: 0.25 MUG, UNK
     Route: 048
     Dates: start: 20170707, end: 20170913
  2. RECOMBINANT HUMAN ERYTHROPOIETIN [Concomitant]
     Active Substance: ERYTHROPOIETIN
     Dosage: 10000 IU, UNK
     Route: 058
     Dates: start: 20170721, end: 20170811
  3. CARFILZOMIB [Suspect]
     Active Substance: CARFILZOMIB
     Indication: PLASMA CELL MYELOMA
     Dosage: 43 MG, PER CHEMO REGIM
     Route: 042
     Dates: start: 20170505, end: 20170908
  4. DEXAMETHASONE. [Suspect]
     Active Substance: DEXAMETHASONE
     Indication: PLASMA CELL MYELOMA
     Dosage: UNK UNK, PER CHEMO REGIM
     Route: 042
     Dates: start: 20170505, end: 20170915
  5. TEICOPLANIN [Concomitant]
     Active Substance: TEICOPLANIN
     Dosage: 0.2 G, UNK
     Route: 042
     Dates: start: 20170509, end: 20170520
  6. POTASSIUM CHLORIDE. [Concomitant]
     Active Substance: POTASSIUM CHLORIDE
     Dosage: 0.5 TO 20 G, UNK
     Route: 048
     Dates: start: 20170523, end: 20170915
  7. SODIUM CHLORIDE. [Concomitant]
     Active Substance: SODIUM CHLORIDE
     Dosage: 250 TO 500 ML, UNK
     Route: 042
     Dates: start: 20170629, end: 20170908
  8. TINIDAZOLE. [Concomitant]
     Active Substance: TINIDAZOLE
     Dosage: UNK
     Route: 048
     Dates: start: 20170508, end: 20170623
  9. ONDANSETRON [Concomitant]
     Active Substance: ONDANSETRON
     Dosage: 8 MG, UNK
     Route: 048
     Dates: start: 20170728, end: 20170730
  10. VALACICLOVIR [Concomitant]
     Active Substance: VALACYCLOVIR HYDROCHLORIDE
     Dosage: 300 MG, UNK
     Route: 048
     Dates: start: 20170504, end: 20170915
  11. CEFOPERAZONE SODIUM AND SULBACTAM SODIUM [Concomitant]
     Active Substance: CEFOPERAZONE SODIUM\SULBACTAM SODIUM
     Dosage: 3 G, UNK
     Route: 042
     Dates: start: 20170516, end: 20170518
  12. AMBROXOL HYDROCHLORIDE [Concomitant]
     Active Substance: AMBROXOL HYDROCHLORIDE
     Dosage: 90 MUG, UNK
     Route: 042
     Dates: start: 20170516, end: 20170522
  13. LANSOPRAZOLE. [Concomitant]
     Active Substance: LANSOPRAZOLE
     Indication: PROPHYLAXIS
     Dosage: 30 MG, UNK
     Route: 042
     Dates: start: 20170511, end: 20170511
  14. RIVAROXABAN [Concomitant]
     Active Substance: RIVAROXABAN
     Dosage: 10 MG, UNK
     Route: 048
     Dates: start: 20170811, end: 20170915
  15. ENOXAPARIN SODIUM. [Concomitant]
     Active Substance: ENOXAPARIN SODIUM
     Dosage: 4000 IU, UNK
     Route: 058
     Dates: start: 20170810, end: 20170811
  16. CALCIUM CHLORIDE. [Concomitant]
     Active Substance: CALCIUM CHLORIDE
     Dosage: 20 ML, UNK
     Route: 042
     Dates: start: 20170504, end: 20170504
  17. MOXIFLOXACIN HYDROCHLORIDE. [Concomitant]
     Active Substance: MOXIFLOXACIN HYDROCHLORIDE
     Dosage: 400 MG, UNK
     Route: 048
     Dates: start: 20170515, end: 20170516
  18. PARACETAMOL + CAFFEINE [Concomitant]
     Active Substance: ACETAMINOPHEN\CAFFEINE
     Dosage: 1 UNK
     Route: 048
     Dates: start: 20170510, end: 20170510
  19. IMIPENEM AND CILASTATIN SODIUM [Concomitant]
     Active Substance: CILASTATIN SODIUM\IMIPENEM
     Dosage: 0.5 G, UNK
     Route: 042
     Dates: start: 20170518, end: 20170520
  20. ALBUMIN PREPARED FROM HUMAN PLASMA [Concomitant]
     Dosage: 50 ML, UNK
     Route: 042
     Dates: start: 20170908, end: 20170919
  21. CHYMOTRYPSIN [Concomitant]
     Active Substance: CHYMOTRYPSIN
     Dosage: 4000 UNK, UNK
     Route: 050
     Dates: start: 20170516, end: 20170519

REACTIONS (1)
  - Cardiac amyloidosis [Fatal]

NARRATIVE: CASE EVENT DATE: 20170915
